FAERS Safety Report 21884869 (Version 2)
Quarter: 2023Q4

REPORT INFORMATION
  Report Type: Spontaneous
  Country: FR (occurrence: FR)
  Receive Date: 20230119
  Receipt Date: 20231128
  Transmission Date: 20240110
  Serious: Yes (Life-Threatening, Other)
  Sender: FDA-Public Use
  Company Number: None

PATIENT
  Age: 74 Year
  Sex: Female
  Weight: 70 kg

DRUGS (5)
  1. ATRACURIUM BESYLATE [Suspect]
     Active Substance: ATRACURIUM BESYLATE
     Indication: General anaesthesia
     Dosage: 40 MG, SINGLE
     Route: 042
     Dates: start: 20221018, end: 20221018
  2. DEXAMETHASONE [Suspect]
     Active Substance: DEXAMETHASONE
     Indication: General anaesthesia
     Dosage: 8 MG, SINGLE
     Route: 042
     Dates: start: 20221018, end: 20221018
  3. KETAMINE [Suspect]
     Active Substance: KETAMINE
     Indication: General anaesthesia
     Dosage: 20 MG, SINGLE
     Route: 042
     Dates: start: 20221018, end: 20221018
  4. PROPOFOL LIPURO [Suspect]
     Active Substance: PROPOFOL
     Indication: General anaesthesia
     Dosage: 200 MG, SINGLE
     Route: 042
     Dates: start: 20221018, end: 20221018
  5. SUFENTANIL [Concomitant]
     Active Substance: SUFENTANIL
     Indication: General anaesthesia
     Dosage: 25 UG, SINGLE
     Route: 042
     Dates: start: 20221018, end: 20221018

REACTIONS (1)
  - Anaphylactic shock [Recovered/Resolved]

NARRATIVE: CASE EVENT DATE: 20221018
